FAERS Safety Report 20670821 (Version 3)
Quarter: 2022Q2

REPORT INFORMATION
  Report Type: Spontaneous
  Country: DE (occurrence: DE)
  Receive Date: 20220404
  Receipt Date: 20220627
  Transmission Date: 20220721
  Serious: Yes (Other)
  Sender: FDA-Public Use
  Company Number: DE-MLMSERVICE-20220318-3441196-1

PATIENT
  Age: 30 Year
  Sex: Male
  Weight: 67 kg

DRUGS (10)
  1. TRASTUZUMAB [Suspect]
     Active Substance: TRASTUZUMAB
     Indication: Metastases to liver
     Dosage: 48 MG/KG, CYCLIC
  2. TRASTUZUMAB [Suspect]
     Active Substance: TRASTUZUMAB
     Indication: Adenocarcinoma gastric
  3. OXALIPLATIN [Suspect]
     Active Substance: OXALIPLATIN
     Indication: Adenocarcinoma gastric
     Dosage: 85 MG/M2, 2X/WEEK FOR 6 CYCLES
  4. OXALIPLATIN [Suspect]
     Active Substance: OXALIPLATIN
     Indication: Metastases to liver
     Dosage: UNK, CYCLIC  (DOSES WERE REDUCED TO 75%(FLOT))
  5. DOCETAXEL [Suspect]
     Active Substance: DOCETAXEL
     Indication: Adenocarcinoma gastric
     Dosage: 50 MG/M2, 2X/WEEK FOR 6 CYCLES
  6. DOCETAXEL [Suspect]
     Active Substance: DOCETAXEL
     Indication: Metastases to liver
     Dosage: UNK, CYCLIC (DOSES WERE REDUCED TO 75% (FLOT))
  7. FLUOROURACIL [Suspect]
     Active Substance: FLUOROURACIL
     Indication: Adenocarcinoma gastric
     Dosage: 2400 MG/M2, CYCLIC (CIV 24 H)
     Route: 041
  8. FLUOROURACIL [Suspect]
     Active Substance: FLUOROURACIL
     Indication: Metastases to liver
     Dosage: UNK, CYCLIC (DOSES WERE REDUCED TO 75%(FLOT))
     Route: 041
  9. LEUCOVORIN [Suspect]
     Active Substance: LEUCOVORIN
     Indication: Adenocarcinoma gastric
     Dosage: 200 MG/M2, 2X/WEEK
  10. LEUCOVORIN [Suspect]
     Active Substance: LEUCOVORIN
     Indication: Metastases to liver
     Dosage: UNK, CYCLIC (DOSES WERE REDUCED TO 75%(FLOT))

REACTIONS (13)
  - Tumour lysis syndrome [Unknown]
  - Erythema [Unknown]
  - Skin reaction [Unknown]
  - Pleural effusion [Recovered/Resolved]
  - Pericardial effusion [Recovered/Resolved]
  - Ascites [Recovered/Resolved]
  - Eczema [Unknown]
  - Haematotoxicity [Unknown]
  - Hepatic function abnormal [Recovering/Resolving]
  - Polyneuropathy [Not Recovered/Not Resolved]
  - Alopecia [Not Recovered/Not Resolved]
  - Paronychia [Unknown]
  - Onycholysis [Not Recovered/Not Resolved]
